FAERS Safety Report 5905380-3 (Version None)
Quarter: 2008Q4

REPORT INFORMATION
  Report Type: 
  Country: None (occurrence: None)
  Receive Date: 20081001
  Receipt Date: 20080923
  Transmission Date: 20090506
  Serious: Yes (Hospitalization)
  Sender: FDA-Public Use
  Company Number: US-PFIZER INC-2008080591

PATIENT
  Age: 73 Year
  Sex: Female
  Weight: 51 kg

DRUGS (4)
  1. PROVERA [Suspect]
  2. PREMARIN [Suspect]
  3. ATIVAN [Concomitant]
  4. AMLODIPINE [Concomitant]

REACTIONS (1)
  - DELUSIONAL DISORDER, UNSPECIFIED TYPE [None]
